FAERS Safety Report 16651977 (Version 2)
Quarter: 2019Q3

REPORT INFORMATION
  Report Type: Spontaneous
  Country: US (occurrence: US)
  Receive Date: 20190731
  Receipt Date: 20190829
  Transmission Date: 20191004
  Serious: No
  Sender: FDA-Public Use
  Company Number: US-PFIZER INC-2019325395

PATIENT
  Age: 63 Year
  Sex: Female
  Weight: 102.4 kg

DRUGS (2)
  1. CHANTIX [Suspect]
     Active Substance: VARENICLINE TARTRATE
     Indication: SMOKING CESSATION THERAPY
     Dosage: 0.5 MG, UNK [0.5MG FOR THE FIRST SIX DAYS]
  2. CHANTIX [Suspect]
     Active Substance: VARENICLINE TARTRATE
     Dosage: 1 MG, 2X/DAY,(1 MG TWICE A DAY X 1 WEEK (AS DIRECTED))
     Route: 048
     Dates: start: 20190718, end: 20190816

REACTIONS (4)
  - Sleep disorder [Unknown]
  - Nightmare [Unknown]
  - Restless legs syndrome [Unknown]
  - Dry mouth [Unknown]
